FAERS Safety Report 12564667 (Version 1)
Quarter: 2016Q3

REPORT INFORMATION
  Report Type: Spontaneous
  Country: US (occurrence: None)
  Receive Date: 20160715
  Receipt Date: 20160715
  Transmission Date: 20161109
  Serious: Yes (Hospitalization)
  Sender: FDA-Public Use
  Company Number: None

PATIENT
  Age: 56 Year
  Sex: Male
  Weight: 137.3 kg

DRUGS (1)
  1. DIVALPROEX [Suspect]
     Active Substance: DIVALPROEX SODIUM
     Indication: SEIZURE
     Route: 048
     Dates: start: 20160608, end: 20160630

REACTIONS (2)
  - Hyperammonaemia [None]
  - Encephalopathy [None]

NARRATIVE: CASE EVENT DATE: 20160701
